FAERS Safety Report 13670553 (Version 1)
Quarter: 2017Q2

REPORT INFORMATION
  Report Type: Spontaneous
  Country: US (occurrence: US)
  Receive Date: 20170620
  Receipt Date: 20170620
  Transmission Date: 20170830
  Serious: Yes (Other)
  Sender: FDA-Public Use
  Company Number: US-BAYER-2017-117749

PATIENT
  Age: 22 Year
  Sex: Female

DRUGS (1)
  1. SKYLA [Suspect]
     Active Substance: LEVONORGESTREL
     Indication: CONTRACEPTION
     Dosage: 14 MCG/24HR, CONT
     Route: 015
     Dates: start: 20161114

REACTIONS (4)
  - Uterine haemorrhage [None]
  - Device dislocation [None]
  - Pelvic pain [None]
  - Abdominal pain [None]

NARRATIVE: CASE EVENT DATE: 20161207
